FAERS Safety Report 9319812 (Version 1)
Quarter: 2013Q2

REPORT INFORMATION
  Report Type: Spontaneous
  Country: US (occurrence: US)
  Receive Date: 20130530
  Receipt Date: 20130530
  Transmission Date: 20140414
  Serious: No
  Sender: FDA-Public Use
  Company Number: US-UPSHER-SMITH LABORATORIES, INC.-12000717

PATIENT
  Sex: Female

DRUGS (7)
  1. KLOR-CON TABLETS [Suspect]
     Indication: BLOOD POTASSIUM DECREASED
     Dosage: 32 MEQ, BID
     Route: 048
     Dates: start: 2009, end: 2009
  2. WELCHOL [Concomitant]
     Dosage: UNK
  3. CRESTOR                            /01588601/ [Concomitant]
     Dosage: UNK
  4. LEVOXYL [Concomitant]
     Dosage: UNK
  5. THIAZIDE [Concomitant]
     Dosage: UNK
  6. TAMBOCOR [Concomitant]
     Dosage: UNK
  7. BABY ASPIRIN [Concomitant]
     Dosage: UNK

REACTIONS (1)
  - Faecaloma [Recovered/Resolved]
